FAERS Safety Report 6493298-X (Version None)
Quarter: 2009Q4

REPORT INFORMATION
  Report Type: 
  Country: None (occurrence: None)
  Receive Date: 20091214
  Receipt Date: 20091203
  Transmission Date: 20100525
  Serious: No
  Sender: FDA-Public Use
  Company Number: US-JNJFOC-20091202473

PATIENT
  Sex: Male
  Weight: 127.01 kg

DRUGS (13)
  1. DURAGESIC-100 [Suspect]
     Indication: NEUROPATHY PERIPHERAL
     Route: 062
  2. DURAGESIC-100 [Suspect]
     Route: 062
     Dates: start: 20091201
  3. METFORMIN HCL [Concomitant]
     Indication: DIABETES MELLITUS
     Route: 048
  4. NEXIUM [Concomitant]
     Indication: DRUG USE FOR UNKNOWN INDICATION
     Route: 048
  5. ALLOPURINOL [Concomitant]
     Indication: GOUT
     Route: 048
  6. LASIX [Concomitant]
     Indication: DRUG USE FOR UNKNOWN INDICATION
     Route: 048
  7. AVAPRO [Concomitant]
     Indication: DRUG USE FOR UNKNOWN INDICATION
     Route: 048
  8. XANAX [Concomitant]
     Indication: ANXIETY
     Route: 048
  9. AMBIEN [Concomitant]
     Indication: SLEEP DISORDER
     Route: 048
  10. NIASPAN [Concomitant]
     Indication: DRUG USE FOR UNKNOWN INDICATION
     Route: 048
  11. PERCOCET [Concomitant]
     Indication: DRUG USE FOR UNKNOWN INDICATION
     Route: 048
  12. HUMALOG [Concomitant]
     Indication: DIABETES MELLITUS
     Route: 058
  13. LEVEMIR [Concomitant]
     Indication: DIABETES MELLITUS
     Route: 058

REACTIONS (2)
  - DRUG EFFECT DECREASED [None]
  - DRUG PRESCRIBING ERROR [None]
